FAERS Safety Report 7164531-6 (Version None)
Quarter: 2010Q4

REPORT INFORMATION
  Report Type: 
  Country: None (occurrence: None)
  Receive Date: 20101215
  Receipt Date: 20101207
  Transmission Date: 20110411
  Serious: Yes (Hospitalization)
  Sender: FDA-Public Use
  Company Number: US-US-EMD SERONO, INC.-7026525

PATIENT
  Sex: Female

DRUGS (4)
  1. REBIF [Suspect]
     Indication: MULTIPLE SCLEROSIS
     Route: 058
     Dates: start: 20040607
  2. DILAUDID [Concomitant]
     Indication: PAIN IN EXTREMITY
  3. NAPROSYN [Concomitant]
     Indication: PAIN IN EXTREMITY
  4. NAPROSYN [Concomitant]
     Indication: PARAESTHESIA

REACTIONS (6)
  - ABASIA [None]
  - BRAIN INJURY [None]
  - FALL [None]
  - FATIGUE [None]
  - HEAD INJURY [None]
  - MUSCULAR WEAKNESS [None]
